FAERS Safety Report 16775989 (Version 1)
Quarter: 2019Q3

REPORT INFORMATION
  Report Type: Spontaneous
  Country: US (occurrence: US)
  Receive Date: 20190905
  Receipt Date: 20190905
  Transmission Date: 20191005
  Serious: No
  Sender: FDA-Public Use
  Company Number: US-PFIZER INC-2019378485

PATIENT
  Age: 66 Year
  Sex: Male
  Weight: 93.89 kg

DRUGS (2)
  1. VIAGRA [Suspect]
     Active Substance: SILDENAFIL CITRATE
     Dosage: UNK
     Dates: start: 2015
  2. VIAGRA [Suspect]
     Active Substance: SILDENAFIL CITRATE
     Dosage: 100 MG, UNK (1-4 HOURS BEFORE INTERCOURSE NO MORE THAN 1 DOSE IN 24 HOURS  )

REACTIONS (1)
  - Drug ineffective [Unknown]
